FAERS Safety Report 5133042-1 (Version None)
Quarter: 2006Q4

REPORT INFORMATION
  Report Type: 
  Country: None (occurrence: None)
  Receive Date: 20061017
  Receipt Date: 20060918
  Transmission Date: 20070319
  Serious: Yes (Other)
  Sender: FDA-Public Use
  Company Number: 2006SP001992

PATIENT
  Age: 50 Year
  Sex: Female

DRUGS (2)
  1. TEMODAL [Suspect]
     Indication: BRAIN NEOPLASM
     Dosage: 190 MG, UNKNOWN; PO; SEE IMAGE
     Route: 048
     Dates: end: 20060801
  2. TEMODAL [Suspect]
     Indication: BRAIN NEOPLASM
     Dosage: 190 MG, UNKNOWN; PO; SEE IMAGE
     Route: 048
     Dates: start: 20060301

REACTIONS (1)
  - NEURALGIA [None]
